FAERS Safety Report 6039485-6 (Version None)
Quarter: 2009Q1

REPORT INFORMATION
  Report Type: 
  Country: None (occurrence: None)
  Receive Date: 20090114
  Receipt Date: 20090105
  Transmission Date: 20090719
  Serious: Yes (Other)
  Sender: FDA-Public Use
  Company Number: CHPA2009US00495

PATIENT
  Age: 78 Year
  Sex: Female
  Weight: 81.6 kg

DRUGS (1)
  1. VOLTAREN [Suspect]
     Indication: ARTHRITIS
     Dosage: 4 G, BID, TOPICAL
     Route: 061
     Dates: start: 20081125, end: 20081201

REACTIONS (3)
  - APPLICATION SITE REACTION [None]
  - DRUG ADMINISTERED AT INAPPROPRIATE SITE [None]
  - SKIN EXFOLIATION [None]
